FAERS Safety Report 5084363-2 (Version None)
Quarter: 2006Q3

REPORT INFORMATION
  Report Type: 
  Country: None (occurrence: None)
  Receive Date: 20060817
  Receipt Date: 20060817
  Transmission Date: 20061208
  Serious: No
  Sender: FDA-Public Use
  Company Number: None

PATIENT
  Age: 50 Year
  Sex: Female
  Weight: 57.1532 kg

DRUGS (1)
  1. NITROFURANTOIN [Suspect]
     Indication: URINARY TRACT INFECTION
     Dosage: BID PO
     Route: 048
     Dates: start: 20060726, end: 20060730

REACTIONS (7)
  - ADVERSE DRUG REACTION [None]
  - CHILLS [None]
  - COUGH [None]
  - DRUG HYPERSENSITIVITY [None]
  - PYREXIA [None]
  - RASH [None]
  - RETCHING [None]
